FAERS Safety Report 4947814-7 (Version None)
Quarter: 2006Q1

REPORT INFORMATION
  Report Type: 
  Country: None (occurrence: None)
  Receive Date: 20060320
  Receipt Date: 20060316
  Transmission Date: 20060701
  Serious: Yes (Hospitalization)
  Sender: FDA-Public Use
  Company Number: FR-GLAXOSMITHKLINE-B0416121A

PATIENT
  Age: 30 Year
  Sex: Female

DRUGS (4)
  1. WELLVONE [Suspect]
     Indication: CEREBRAL TOXOPLASMOSIS
     Dosage: 750MG SEE DOSAGE TEXT
     Route: 048
     Dates: start: 20060101, end: 20060101
  2. ALTHIAZIDE [Concomitant]
     Indication: CEREBRAL TOXOPLASMOSIS
     Route: 048
     Dates: start: 20051215, end: 20051201
  3. PYRIMETHAMINE TAB [Concomitant]
     Indication: CEREBRAL TOXOPLASMOSIS
     Route: 065
     Dates: start: 20051215, end: 20060101
  4. HYDRALAZINE [Concomitant]
     Indication: CEREBRAL TOXOPLASMOSIS
     Route: 065
     Dates: start: 20051201, end: 20060101

REACTIONS (9)
  - ALANINE AMINOTRANSFERASE INCREASED [None]
  - ASPARTATE AMINOTRANSFERASE INCREASED [None]
  - BLOOD ALKALINE PHOSPHATASE INCREASED [None]
  - DIZZINESS [None]
  - DRUG RASH WITH EOSINOPHILIA AND SYSTEMIC SYMPTOMS [None]
  - GAMMA-GLUTAMYLTRANSFERASE INCREASED [None]
  - HEADACHE [None]
  - PYREXIA [None]
  - RASH MACULO-PAPULAR [None]
